FAERS Safety Report 7511965-3 (Version None)
Quarter: 2011Q2

REPORT INFORMATION
  Report Type: 
  Country: None (occurrence: None)
  Receive Date: 20110531
  Receipt Date: 20110517
  Transmission Date: 20111010
  Serious: Yes (Other)
  Sender: FDA-Public Use
  Company Number: PHHY2011BR43481

PATIENT
  Sex: Male

DRUGS (1)
  1. RITALIN LA [Suspect]
     Dosage: 30 MG, UNK

REACTIONS (5)
  - BALANCE DISORDER [None]
  - DEPRESSION [None]
  - IRRITABILITY [None]
  - WEIGHT DECREASED [None]
  - INSOMNIA [None]
